FAERS Safety Report 21913927 (Version 1)
Quarter: 2023Q1

REPORT INFORMATION
  Report Type: Spontaneous
  Country: US (occurrence: US)
  Receive Date: 20230125
  Receipt Date: 20230125
  Transmission Date: 20230418
  Serious: No
  Sender: FDA-Public Use
  Company Number: US-ALLERGAN-2222578US

PATIENT
  Age: 49 Year
  Sex: Male

DRUGS (1)
  1. BOTOX COSMETIC [Suspect]
     Active Substance: ONABOTULINUMTOXINA
     Indication: Product used for unknown indication
     Dosage: 52 UNITS, SINGLE
     Dates: start: 20220701, end: 20220701

REACTIONS (3)
  - Eye oedema [Not Recovered/Not Resolved]
  - Facial discomfort [Not Recovered/Not Resolved]
  - Brow ptosis [Not Recovered/Not Resolved]
